FAERS Safety Report 24647139 (Version 1)
Quarter: 2024Q4

REPORT INFORMATION
  Report Type: Spontaneous
  Country: FR (occurrence: FR)
  Receive Date: 20241121
  Receipt Date: 20241121
  Transmission Date: 20250114
  Serious: Yes (Death)
  Sender: PFIZER
  Company Number: None

PATIENT
  Age: 68 Year
  Sex: Male
  Weight: 71 kg

DRUGS (1)
  1. PIPERACILLIN SODIUM\TAZOBACTAM SODIUM [Suspect]
     Active Substance: PIPERACILLIN SODIUM\TAZOBACTAM SODIUM
     Indication: Pseudomonas infection
     Dosage: 4 G EVERY 6 HOURS
     Route: 042
     Dates: start: 20240902, end: 20240902

REACTIONS (1)
  - Cardio-respiratory arrest [Fatal]

NARRATIVE: CASE EVENT DATE: 20240902
